FAERS Safety Report 7515905-2 (Version None)
Quarter: 2011Q2

REPORT INFORMATION
  Report Type: 
  Country: None (occurrence: None)
  Receive Date: 20110601
  Receipt Date: 20110526
  Transmission Date: 20111010
  Serious: Yes (Other)
  Sender: FDA-Public Use
  Company Number: US-PFIZER INC-2011049526

PATIENT
  Sex: Male

DRUGS (1)
  1. CHANTIX [Suspect]
     Indication: SMOKING CESSATION THERAPY
     Dosage: STARTER PACK 0.5MG AND CONTINUING MONTHLY PACK 1MG
     Dates: start: 20080508, end: 20090201

REACTIONS (3)
  - AMNESIA [None]
  - LOSS OF CONSCIOUSNESS [None]
  - CONVULSION [None]
